FAERS Safety Report 8822971 (Version 8)
Quarter: 2013Q2

REPORT INFORMATION
  Report Type: Spontaneous
  Country: US (occurrence: US)
  Receive Date: 20121003
  Receipt Date: 20130620
  Transmission Date: 20140414
  Serious: Yes (Hospitalization, Other)
  Sender: FDA-Public Use
  Company Number: US-009507513-1209USA007133

PATIENT
  Age: 62 Year
  Sex: Female

DRUGS (10)
  1. PEG-INTRON [Suspect]
     Indication: CHRONIC HEPATITIS C
     Dosage: UNK
     Route: 058
     Dates: start: 20120914, end: 20121016
  2. PEG-INTRON [Suspect]
     Dosage: UNK
     Dates: start: 20121130, end: 20130503
  3. PEG-INTRON [Suspect]
     Dosage: UNK
     Dates: start: 20130607
  4. VICTRELIS [Suspect]
     Indication: CHRONIC HEPATITIS C
     Dosage: UNK
     Dates: start: 20121008, end: 20121016
  5. VICTRELIS [Suspect]
     Dosage: UNK
     Dates: end: 20130503
  6. VICTRELIS [Suspect]
     Dosage: UNK
     Dates: start: 20130607
  7. RIBAVIRIN [Suspect]
     Indication: CHRONIC HEPATITIS C
     Dosage: UNK
     Route: 048
     Dates: start: 20120914, end: 20121016
  8. RIBAVIRIN [Suspect]
     Dosage: ONE PILL A DAY
     Dates: start: 20121126, end: 20130104
  9. RIBAVIRIN [Suspect]
     Dosage: UNK
     Dates: start: 2013, end: 20130503
  10. RIBAVIRIN [Suspect]
     Dosage: UNK
     Dates: start: 20130607

REACTIONS (22)
  - Dehydration [Unknown]
  - Blood disorder [Unknown]
  - Dehydration [Unknown]
  - Headache [Recovered/Resolved]
  - Anaemia [Unknown]
  - Fatigue [Unknown]
  - Fatigue [Unknown]
  - Back pain [Unknown]
  - Headache [Unknown]
  - Decreased appetite [Unknown]
  - Fatigue [Unknown]
  - Memory impairment [Unknown]
  - Malaise [Unknown]
  - Headache [Unknown]
  - Blood disorder [Unknown]
  - Leukopenia [Recovered/Resolved]
  - Headache [Unknown]
  - White blood cell count decreased [Recovered/Resolved]
  - Anaemia [Unknown]
  - Haemoglobin decreased [Recovered/Resolved]
  - Anaemia [Recovered/Resolved]
  - Anaemia [Unknown]
